FAERS Safety Report 4375946-3 (Version None)
Quarter: 2004Q2

REPORT INFORMATION
  Report Type: 
  Country: None (occurrence: None)
  Receive Date: 20040611
  Receipt Date: 20040604
  Transmission Date: 20050107
  Serious: Yes (Death, Other)
  Sender: FDA-Public Use
  Company Number: IT-BRISTOL-MYERS SQUIBB COMPANY-12610598

PATIENT

DRUGS (8)
  1. ETOPOSIDE [Suspect]
     Indication: HODGKIN'S DISEASE
     Dosage: ON DAYS 1+2 OF CYCLE
     Route: 042
  2. BLEOMYCIN HCL [Suspect]
     Indication: HODGKIN'S DISEASE
     Route: 042
  3. CYCLOPHOSPHAMIDE [Suspect]
     Indication: HODGKIN'S DISEASE
     Dosage: ON DAYS 1+2
     Route: 042
  4. EPIRUBICIN [Suspect]
     Indication: HODGKIN'S DISEASE
     Dosage: ON DAYS 1+2
     Route: 042
  5. PREDNISOLONE [Suspect]
     Indication: HODGKIN'S DISEASE
     Dosage: ON DAYS 1-7
     Route: 048
  6. RADIOTHERAPY [Suspect]
     Indication: HODGKIN'S DISEASE
     Dosage: DAILY DOSE: 1.5-1.8 GY
  7. CIPROFLOXACIN [Concomitant]
     Indication: PROPHYLAXIS
     Route: 048
  8. FLUCONAZOLE [Concomitant]
     Indication: PROPHYLAXIS
     Dosage: DAY 3-14 OF CYCLE
     Route: 048

REACTIONS (2)
  - RENAL CELL CARCINOMA STAGE UNSPECIFIED [None]
  - TREATMENT RELATED SECONDARY MALIGNANCY [None]
